FAERS Safety Report 23277489 (Version 1)
Quarter: 2023Q4

REPORT INFORMATION
  Report Type: Spontaneous
  Country: US (occurrence: None)
  Receive Date: 20231207
  Receipt Date: 20231207
  Transmission Date: 20240110
  Serious: Yes (Other)
  Sender: FDA-Public Use
  Company Number: None

PATIENT
  Age: 32 Year
  Sex: Male
  Weight: 97.7 kg

DRUGS (3)
  1. PAROXETINE [Suspect]
     Active Substance: PAROXETINE
     Indication: Post-traumatic stress disorder
     Dosage: FREQUENCY : DAILY;?
     Route: 048
  2. PAROXETINE [Suspect]
     Active Substance: PAROXETINE
     Indication: Anxiety
  3. PAROXETINE [Suspect]
     Active Substance: PAROXETINE
     Indication: Depression

REACTIONS (4)
  - Sedation [None]
  - Fatigue [None]
  - Sluggishness [None]
  - Mental impairment [None]

NARRATIVE: CASE EVENT DATE: 20231027
